FAERS Safety Report 5119357-1 (Version None)
Quarter: 2006Q4

REPORT INFORMATION
  Report Type: 
  Country: None (occurrence: None)
  Receive Date: 20061003
  Receipt Date: 20060802
  Transmission Date: 20070319
  Serious: Yes (Hospitalization, Other)
  Sender: FDA-Public Use
  Company Number: US-AVENTIS-200616388US

PATIENT
  Sex: Male
  Weight: 104.54 kg

DRUGS (42)
  1. LANTUS [Suspect]
     Indication: DIABETES MELLITUS NON-INSULIN-DEPENDENT
     Dosage: DOSE: 10-80 UNITS
     Dates: start: 20041006
  2. AMARYL [Suspect]
     Indication: DIABETES MELLITUS
     Dates: start: 20040801
  3. AMARYL [Suspect]
     Dates: end: 20060405
  4. AMARYL [Suspect]
     Dates: start: 20060406
  5. NOVALOG [Concomitant]
     Dates: start: 20060401
  6. NOVALOG [Concomitant]
     Dates: start: 20060101
  7. BUMETANIDE [Concomitant]
  8. SPIRONOLACTONE [Concomitant]
  9. LASIX [Concomitant]
     Dosage: DOSE: 20 MG EVERY OTHER DAY
  10. LASIX [Concomitant]
  11. LASIX [Concomitant]
     Dates: start: 20040101
  12. LASIX [Concomitant]
     Dates: start: 20050101
  13. LASIX [Concomitant]
     Dates: start: 20050101
  14. LASIX [Concomitant]
     Dates: start: 20050101
  15. ATENOLOL [Concomitant]
  16. ATENOLOL [Concomitant]
  17. K-DUR 10 [Concomitant]
  18. UROXATROL [Concomitant]
  19. PROSCAR [Concomitant]
  20. ASPIRIN [Concomitant]
  21. GLUCOPHAGE [Concomitant]
     Dosage: DOSE: 500 (2 TABS AM AND PM
  22. GLUCOPHAGE [Concomitant]
  23. LISINOPRIL [Concomitant]
     Dates: end: 20030721
  24. LISINOPRIL [Concomitant]
     Dates: start: 20041110
  25. KLOR-CON [Concomitant]
     Dosage: DOSE: UNK
  26. GLYBURIDE [Concomitant]
     Dosage: DOSE: UNK
  27. K-DUR 10 [Concomitant]
     Dosage: DOSE: UNK
  28. ALLOPURINOL [Concomitant]
  29. POTASSIUM CHLORIDE [Concomitant]
     Dosage: DOSE: UNK
  30. TENORMIN [Concomitant]
  31. ASPIRIN [Concomitant]
     Dosage: DOSE: UNK
  32. FLOMAX [Concomitant]
     Dosage: DOSE: UNK
  33. AMBIEN [Concomitant]
  34. TORSEMIDE [Concomitant]
  35. DEMADEX [Concomitant]
     Dosage: DOSE: UNK
  36. ZAROXOLYN [Concomitant]
     Dosage: DOSE: UNK
  37. OXYGEN [Concomitant]
     Route: 045
     Dates: start: 20050101
  38. GLYNASE [Concomitant]
     Dates: end: 20040801
  39. PREVACID [Concomitant]
     Dates: start: 20050101
  40. FLOVENT [Concomitant]
     Dosage: DOSE: 220 UG, 2 PUFFS BID
     Dates: start: 20050101
  41. HYCODAN [Concomitant]
     Indication: COUGH
     Dosage: DOSE: 1 TSP Q 4 HOURS
     Dates: start: 20060206
  42. KLOR-CON [Concomitant]
     Dates: start: 20040101

REACTIONS (43)
  - ABDOMINAL DISTENSION [None]
  - ACTINIC KERATOSIS [None]
  - ACUTE RESPIRATORY FAILURE [None]
  - ASCITES [None]
  - ATELECTASIS [None]
  - BENIGN PROSTATIC HYPERPLASIA [None]
  - BIOPSY LIVER ABNORMAL [None]
  - BLOOD GLUCOSE INCREASED [None]
  - BLOOD URIC ACID INCREASED [None]
  - CALCULUS BLADDER [None]
  - CARDIAC FAILURE CONGESTIVE [None]
  - CATARACT [None]
  - CRYPTOGENIC CIRRHOSIS [None]
  - DERMATITIS [None]
  - DIABETES MELLITUS INADEQUATE CONTROL [None]
  - DYSPNOEA [None]
  - DYSPNOEA EXERTIONAL [None]
  - GALLBLADDER DISORDER [None]
  - HAEMATOCRIT DECREASED [None]
  - HAEMATURIA [None]
  - HAEMOGLOBIN DECREASED [None]
  - HEPATIC CIRRHOSIS [None]
  - HEPATIC STEATOSIS [None]
  - HYPERTENSION [None]
  - HYPOKALAEMIA [None]
  - INJECTION SITE BRUISING [None]
  - LABORATORY TEST ABNORMAL [None]
  - LUNG INFILTRATION [None]
  - OEDEMA PERIPHERAL [None]
  - PANCREAS LIPOMATOSIS [None]
  - PLATELET COUNT DECREASED [None]
  - PLEURAL EFFUSION [None]
  - PORTAL HYPERTENSION [None]
  - PULMONARY OEDEMA [None]
  - RED BLOOD CELL ABNORMALITY [None]
  - RENAL IMPAIRMENT [None]
  - RESIDUAL URINE VOLUME [None]
  - SOLAR ELASTOSIS [None]
  - SPLENOMEGALY [None]
  - UMBILICAL HERNIA [None]
  - UPPER RESPIRATORY TRACT INFECTION [None]
  - VISUAL DISTURBANCE [None]
  - WEIGHT INCREASED [None]
